FAERS Safety Report 10707282 (Version 1)
Quarter: 2015Q1

REPORT INFORMATION
  Report Type: Spontaneous
  Country: US (occurrence: None)
  Receive Date: 20150112
  Receipt Date: 20150112
  Transmission Date: 20150721
  Serious: Yes (Hospitalization)
  Sender: FDA-Public Use
  Company Number: None

PATIENT
  Age: 38 Year
  Sex: Male
  Weight: 128.82 kg

DRUGS (9)
  1. BECLOMETHASONE [Concomitant]
     Active Substance: BECLOMETHASONE
  2. ALBUTEROL (PROAIR HFA) [Concomitant]
  3. STRIBILD [Suspect]
     Active Substance: COBICISTAT\ELVITEGRAVIR\EMTRICITABINE\TENOFOVIR DISOPROXIL FUMARATE
     Indication: HIV INFECTION
     Dosage: 1 TABLET, QD, ORAL
     Route: 048
     Dates: start: 20131112
  4. IBUPROFEN. [Concomitant]
     Active Substance: IBUPROFEN
  5. OMEPRAZOLE. [Concomitant]
     Active Substance: OMEPRAZOLE
  6. STRIBILD [Suspect]
     Active Substance: COBICISTAT\ELVITEGRAVIR\EMTRICITABINE\TENOFOVIR DISOPROXIL FUMARATE
     Indication: ACQUIRED IMMUNODEFICIENCY SYNDROME
     Dosage: 1 TABLET, QD, ORAL
     Route: 048
     Dates: start: 20131112
  7. BUPROPION [Concomitant]
     Active Substance: BUPROPION
  8. PRILOSEC [Concomitant]
     Active Substance: OMEPRAZOLE MAGNESIUM
  9. HYDROCHLOROTHIAZIDE-VALSARTAN [Concomitant]

REACTIONS (10)
  - Vision blurred [None]
  - Hyperglycaemia [None]
  - Pollakiuria [None]
  - Polyp [None]
  - Thirst [None]
  - Dehydration [None]
  - Nausea [None]
  - Vomiting [None]
  - Abdominal distension [None]
  - Blood sodium decreased [None]

NARRATIVE: CASE EVENT DATE: 20141229
